FAERS Safety Report 8015845-9 (Version None)
Quarter: 2011Q4

REPORT INFORMATION
  Report Type: 
  Country: None (occurrence: None)
  Receive Date: 20111230
  Receipt Date: 20111221
  Transmission Date: 20120403
  Serious: Yes (Other)
  Sender: FDA-Public Use
  Company Number: US-ROCHE-780510

PATIENT
  Sex: Male
  Weight: 79.45 kg

DRUGS (2)
  1. ACCUTANE [Suspect]
     Indication: ACNE
     Dates: start: 19840101, end: 19850701
  2. ASPIRIN [Concomitant]

REACTIONS (2)
  - COLITIS ULCERATIVE [None]
  - COLONIC POLYP [None]
